FAERS Safety Report 4941446-2 (Version None)
Quarter: 2006Q1

REPORT INFORMATION
  Report Type: 
  Country: None (occurrence: None)
  Receive Date: 20060308
  Receipt Date: 20060124
  Transmission Date: 20060701
  Serious: Yes (Disabling)
  Sender: FDA-Public Use
  Company Number: 2005172844

PATIENT
  Age: 52 Year
  Sex: Female
  Weight: 76 kg

DRUGS (7)
  1. LYRICA [Suspect]
     Indication: ILL-DEFINED DISORDER
     Dosage: 75 MG (75 MG, 1 IN 1 D); ORAL
     Route: 048
  2. EFFEXOR [Concomitant]
  3. DIPLEXIL R (VALPROIC ACID) [Concomitant]
  4. OXYFEDRINE [Concomitant]
  5. RISPERDAL [Concomitant]
  6. LETTER (LEVOTHYROXINE SODIUM) [Concomitant]
  7. COSOPT [Concomitant]

REACTIONS (8)
  - AMNESIA [None]
  - ANOREXIA [None]
  - ARTHRALGIA [None]
  - COGNITIVE DISORDER [None]
  - CONFUSIONAL STATE [None]
  - DRY MOUTH [None]
  - VERTIGO [None]
  - VOMITING [None]
